FAERS Safety Report 7823985-X (Version None)
Quarter: 2011Q4

REPORT INFORMATION
  Report Type: 
  Country: None (occurrence: None)
  Receive Date: 20111019
  Receipt Date: 20111013
  Transmission Date: 20120403
  Serious: Yes (Other)
  Sender: FDA-Public Use
  Company Number: US-PFIZER INC-2011245113

PATIENT
  Age: 76 Year
  Sex: Female

DRUGS (10)
  1. PHENYTOIN [Suspect]
     Indication: COMPLEX PARTIAL SEIZURES
     Dosage: 400-460 MG/DAY
     Dates: start: 19920101
  2. CAPECITABINE [Interacting]
     Indication: METASTATIC NEOPLASM
     Dosage: 2000 MG/DAY, 2 WEEKS ON AND 2 WEEKS OFF
     Dates: start: 20080618
  3. LEVOTHYROXINE [Concomitant]
     Dosage: UNK
  4. FULVESTRANT [Concomitant]
     Dosage: UNK
  5. ZOLEDRONIC ACID [Concomitant]
     Dosage: UNK
  6. MULTI-VITAMINS [Concomitant]
     Dosage: UNK
  7. GLUCOSAMINE [Concomitant]
     Dosage: UNK
  8. HYDROCHLOROTHIAZIDE [Concomitant]
     Dosage: UNK
  9. NAPROXEN SODIUM [Concomitant]
     Dosage: UNK
  10. ENALAPRIL [Concomitant]
     Dosage: UNK

REACTIONS (5)
  - FATIGUE [None]
  - ATAXIA [None]
  - ANTICONVULSANT DRUG LEVEL INCREASED [None]
  - SEDATION [None]
  - DRUG INTERACTION [None]
